FAERS Safety Report 10879332 (Version 1)
Quarter: 2015Q1

REPORT INFORMATION
  Report Type: Spontaneous
  Country: PL (occurrence: PL)
  Receive Date: 20150302
  Receipt Date: 20150302
  Transmission Date: 20150721
  Serious: Yes (Other)
  Sender: FDA-Public Use
  Company Number: PHHY2015PL021239

PATIENT
  Age: 66 Year
  Sex: Male

DRUGS (9)
  1. NITROPRUSSIDE [Concomitant]
     Active Substance: NITROPRUSSIDE
     Indication: PULMONARY HYPERTENSION
     Dosage: 2 UG/KG/MIN
     Route: 065
  2. CLOPIDOGREL [Suspect]
     Active Substance: CLOPIDOGREL BISULFATE
     Indication: ANTIPLATELET THERAPY
     Route: 065
  3. VIVACOR [Concomitant]
     Active Substance: BISOPROLOL FUMARATE
     Indication: CARDIAC FAILURE
     Dosage: 6.25 MG, QD
     Route: 065
  4. DIGITALIS [Concomitant]
     Active Substance: DIGITALIS
     Indication: CARDIAC FAILURE
     Dosage: 0.25 MG, QD
     Route: 065
  5. HYDROCHLOROTHIAZIDE. [Concomitant]
     Active Substance: HYDROCHLOROTHIAZIDE
     Indication: CARDIAC FAILURE
     Dosage: 50 MG, QD
     Route: 065
  6. ZOTRAL [Concomitant]
     Indication: CARDIAC FAILURE
     Dosage: 100 MG, QD
     Route: 065
  7. CONTROLOC [Concomitant]
     Active Substance: PANTOPRAZOLE SODIUM
     Indication: CARDIAC FAILURE
     Dosage: 10 MG, QD
     Route: 065
  8. WARFARIN [Suspect]
     Active Substance: WARFARIN
     Indication: ANTICOAGULANT THERAPY
     Route: 065
  9. ACETYLSALICYLIC ACID [Suspect]
     Active Substance: ASPIRIN
     Indication: ANTIPLATELET THERAPY
     Route: 065

REACTIONS (1)
  - Gastrointestinal haemorrhage [Recovered/Resolved]
